FAERS Safety Report 6977951-7 (Version None)
Quarter: 2010Q3

REPORT INFORMATION
  Report Type: 
  Country: None (occurrence: None)
  Receive Date: 20100913
  Receipt Date: 20100907
  Transmission Date: 20110219
  Serious: Yes (Other)
  Sender: FDA-Public Use
  Company Number: JP-PFIZER INC-2010111875

PATIENT

DRUGS (1)
  1. CORTRIL [Suspect]
     Indication: ADRENAL INSUFFICIENCY
     Dosage: 20 MG, UNK
     Route: 048
     Dates: start: 20100101

REACTIONS (2)
  - COAGULOPATHY [None]
  - PANCYTOPENIA [None]
